FAERS Safety Report 8135923-3 (Version None)
Quarter: 2012Q1

REPORT INFORMATION
  Report Type: 
  Country: None (occurrence: None)
  Receive Date: 20120214
  Receipt Date: 20120203
  Transmission Date: 20120608
  Serious: Yes (Hospitalization)
  Sender: FDA-Public Use
  Company Number: JP-TEVA-2011003093

PATIENT
  Sex: Female
  Weight: 50 kg

DRUGS (18)
  1. ACYCLOVIR [Concomitant]
     Dosage: 400 MILLIGRAM;
     Dates: start: 20110621
  2. BENDAMUSTINE [Suspect]
     Route: 042
     Dates: start: 20110210, end: 20110211
  3. BENDAMUSTINE [Suspect]
     Route: 042
     Dates: start: 20110310, end: 20110311
  4. RITUXIMAB [Suspect]
     Route: 042
     Dates: start: 20110112, end: 20110112
  5. RITUXIMAB [Suspect]
     Route: 042
     Dates: start: 20110406, end: 20110406
  6. FAMOTIDINE [Concomitant]
  7. EZETIMIBE [Concomitant]
     Indication: HYPERLIPIDAEMIA
  8. RITUXIMAB [Suspect]
     Route: 042
     Dates: start: 20110209, end: 20110209
  9. RITUXIMAB [Suspect]
     Route: 042
     Dates: start: 20110511, end: 20110511
  10. GRANISETRON HYDROCHLORIDE [Concomitant]
     Dates: start: 20101216, end: 20110211
  11. BENDAMUSTINE [Suspect]
     Route: 042
     Dates: start: 20110407, end: 20110408
  12. SULFAMETHOXAZOLE AND TRIMETHOPRIM [Concomitant]
  13. BENDAMUSTINE [Suspect]
     Indication: B-CELL LYMPHOMA
     Dosage: 90 MG/M2;
     Route: 042
     Dates: start: 20101216, end: 20101217
  14. BENDAMUSTINE [Suspect]
     Route: 042
     Dates: start: 20110512, end: 20110513
  15. RITUXIMAB [Suspect]
     Indication: B-CELL LYMPHOMA
     Route: 042
     Dates: start: 20101215, end: 20101215
  16. BENDAMUSTINE [Suspect]
     Dosage: 90 MG/M2;
     Route: 042
     Dates: start: 20110113, end: 20110114
  17. RITUXIMAB [Suspect]
     Route: 042
     Dates: start: 20110309, end: 20110309
  18. ALLOPURINOL [Concomitant]

REACTIONS (4)
  - CYTOMEGALOVIRUS INFECTION [None]
  - NEUTROPHIL COUNT DECREASED [None]
  - WHITE BLOOD CELL COUNT DECREASED [None]
  - LYMPHOCYTE COUNT DECREASED [None]
